FAERS Safety Report 17724668 (Version 5)
Quarter: 2023Q2

REPORT INFORMATION
  Report Type: Spontaneous
  Country: IT (occurrence: IT)
  Receive Date: 20200429
  Receipt Date: 20230421
  Transmission Date: 20230722
  Serious: Yes (Hospitalization)
  Sender: FDA-Public Use
  Company Number: None

PATIENT
  Age: 5 Year
  Sex: Male

DRUGS (3)
  1. OMEPRAZOLE [Interacting]
     Active Substance: OMEPRAZOLE
     Indication: Prophylaxis
     Dosage: 1 MG/KG, QD
     Route: 042
  2. OMEPRAZOLE [Interacting]
     Active Substance: OMEPRAZOLE
     Dosage: 0.8 MG/KG, QD
     Route: 042
  3. PHENYTOIN [Interacting]
     Active Substance: PHENYTOIN
     Indication: Nervous system disorder prophylaxis
     Dosage: 5 MG/KG, BID
     Route: 042

REACTIONS (4)
  - Drug level above therapeutic [Recovered/Resolved]
  - Loss of consciousness [Recovering/Resolving]
  - Drug interaction [Recovered/Resolved]
  - Product use issue [Unknown]
